FAERS Safety Report 9134024 (Version 1)
Quarter: 2013Q1

REPORT INFORMATION
  Report Type: Spontaneous
  Country: AU (occurrence: AU)
  Receive Date: 20130304
  Receipt Date: 20130304
  Transmission Date: 20140127
  Serious: Yes (Disabling, Other)
  Sender: FDA-Public Use
  Company Number: AU-009507513-1302AUS013756

PATIENT
  Sex: 0

DRUGS (1)
  1. SAPHRIS [Suspect]

REACTIONS (2)
  - Anxiety [Unknown]
  - Insomnia [Unknown]
